FAERS Safety Report 16243899 (Version 1)
Quarter: 2019Q2

REPORT INFORMATION
  Report Type: Spontaneous
  Country: US (occurrence: US)
  Receive Date: 20190425
  Receipt Date: 20190425
  Transmission Date: 20190711
  Serious: No
  Sender: FDA-Public Use
  Company Number: None

PATIENT
  Age: 18 Year
  Sex: Female
  Weight: 58.5 kg

DRUGS (1)
  1. METRONIDAZOLE FLAGYL [Suspect]
     Active Substance: METRONIDAZOLE
     Indication: CLOSTRIDIUM DIFFICILE INFECTION
     Dosage: ?          QUANTITY:1 CAPSULE(S);?
     Route: 048
     Dates: start: 20171227, end: 20180103

REACTIONS (7)
  - Panic attack [None]
  - Insomnia [None]
  - Psychotic disorder [None]
  - Sleep terror [None]
  - Anxiety [None]
  - Major depression [None]
  - Agoraphobia [None]

NARRATIVE: CASE EVENT DATE: 20180101
